FAERS Safety Report 6492994-8 (Version None)
Quarter: 2009Q4

REPORT INFORMATION
  Report Type: 
  Country: None (occurrence: None)
  Receive Date: 20091211
  Receipt Date: 20091211
  Transmission Date: 20100525
  Serious: Yes (Hospitalization, Other)
  Sender: FDA-Public Use
  Company Number: None

PATIENT
  Age: 24 Year
  Sex: Male
  Weight: 80.45 kg

DRUGS (2)
  1. CYCLOBENZAPRINE [Suspect]
     Dosage: 10 MG TID PO
     Route: 048
     Dates: start: 20091019, end: 20091116
  2. CLONAZEPAM [Suspect]
     Dosage: 1 MG TID PO
     Route: 048
     Dates: start: 20091013, end: 20091116

REACTIONS (1)
  - CONFUSIONAL STATE [None]
